FAERS Safety Report 6336653-0 (Version None)
Quarter: 2009Q3

REPORT INFORMATION
  Report Type: 
  Country: None (occurrence: None)
  Receive Date: 20090831
  Receipt Date: 20090831
  Transmission Date: 20100115
  Serious: Yes (Life-Threatening, Hospitalization)
  Sender: FDA-Public Use
  Company Number: None

PATIENT
  Age: 67 Year
  Sex: Female
  Weight: 90.7194 kg

DRUGS (4)
  1. LYRICA [Suspect]
     Indication: PAIN
     Dosage: 75 MG. X2 4-24-9 TO 7-9-9 PO
     Route: 048
     Dates: start: 20090424, end: 20090709
  2. LYRICA [Suspect]
     Indication: WRIST FRACTURE
     Dosage: 75 MG. X2 4-24-9 TO 7-9-9 PO
     Route: 048
     Dates: start: 20090424, end: 20090709
  3. LYRICA [Suspect]
     Indication: PAIN
     Dosage: 75 MG. X2 4-24-9 TO 7-9-9 PO
     Route: 048
     Dates: start: 20090712, end: 20090810
  4. LYRICA [Suspect]
     Indication: WRIST FRACTURE
     Dosage: 75 MG. X2 4-24-9 TO 7-9-9 PO
     Route: 048
     Dates: start: 20090712, end: 20090810

REACTIONS (9)
  - ASTHENIA [None]
  - COLD SWEAT [None]
  - DYSPNOEA [None]
  - FATIGUE [None]
  - HEART RATE INCREASED [None]
  - HYPERTENSION [None]
  - HYPOAESTHESIA [None]
  - PARAESTHESIA [None]
  - POLLAKIURIA [None]
